FAERS Safety Report 6527340-4 (Version None)
Quarter: 2010Q1

REPORT INFORMATION
  Report Type: 
  Country: None (occurrence: None)
  Receive Date: 20100104
  Receipt Date: 20100104
  Transmission Date: 20100710
  Serious: Yes (Other)
  Sender: FDA-Public Use
  Company Number: None

PATIENT
  Age: 69 Year
  Sex: Male
  Weight: 97.0698 kg

DRUGS (1)
  1. ONGLYZA [Suspect]
     Dosage: 1 TABLET DAILY PO
     Route: 048
     Dates: start: 20091207, end: 20091214

REACTIONS (2)
  - DIZZINESS [None]
  - VERTIGO [None]
